FAERS Safety Report 6287737-7 (Version None)
Quarter: 2009Q3

REPORT INFORMATION
  Report Type: 
  Country: None (occurrence: None)
  Receive Date: 20090727
  Receipt Date: 20090727
  Transmission Date: 20100115
  Serious: No
  Sender: FDA-Public Use
  Company Number: None

PATIENT
  Age: 54 Year
  Sex: Female
  Weight: 59.8748 kg

DRUGS (2)
  1. LEVAQUIN [Suspect]
     Indication: SINUSITIS
     Dates: start: 20081115, end: 20081125
  2. LEVAQUIN [Suspect]
     Indication: SINUSITIS
     Dosage: 1 DAY PO
     Route: 048
     Dates: start: 20081115, end: 20081125

REACTIONS (2)
  - ARTHRALGIA [None]
  - TENDON PAIN [None]
